FAERS Safety Report 9870140 (Version 1)
Quarter: 2014Q1

REPORT INFORMATION
  Report Type: Spontaneous
  Country: AT (occurrence: AT)
  Receive Date: 20140205
  Receipt Date: 20140205
  Transmission Date: 20141002
  Serious: Yes (Other)
  Sender: FDA-Public Use
  Company Number: PHHY2014AT013204

PATIENT
  Sex: Female
  Weight: 2.34 kg

DRUGS (2)
  1. CICLOSPORIN [Suspect]
     Route: 064
  2. PREDNISOLONE [Suspect]
     Route: 064

REACTIONS (4)
  - Low birth weight baby [Unknown]
  - Premature baby [Unknown]
  - Immunosuppressant drug level increased [Unknown]
  - Foetal exposure during pregnancy [Unknown]
